FAERS Safety Report 6900567-5 (Version None)
Quarter: 2010Q3

REPORT INFORMATION
  Report Type: 
  Country: None (occurrence: None)
  Receive Date: 20100803
  Receipt Date: 20100729
  Transmission Date: 20110219
  Serious: Yes (Hospitalization, Other)
  Sender: FDA-Public Use
  Company Number: CN-PFIZER INC-2010095137

PATIENT
  Sex: Male

DRUGS (2)
  1. CELEBREX [Suspect]
     Indication: RHEUMATOID ARTHRITIS
     Dosage: 1 CAPSULE, 2X/DAY
     Route: 048
     Dates: start: 20100726, end: 20100727
  2. GLUCOSAMINE HYDROCHLORIDE [Suspect]
     Indication: RHEUMATOID ARTHRITIS
     Dosage: 2 CAPSULES, 3X/DAY
     Route: 048
     Dates: start: 20100726, end: 20100727

REACTIONS (7)
  - ALANINE AMINOTRANSFERASE INCREASED [None]
  - ASPARTATE AMINOTRANSFERASE INCREASED [None]
  - DECREASED APPETITE [None]
  - RENAL IMPAIRMENT [None]
  - TONSILLITIS [None]
  - URINARY TRACT INFLAMMATION [None]
  - VOMITING [None]
